FAERS Safety Report 12364723 (Version 1)
Quarter: 2016Q2

REPORT INFORMATION
  Report Type: Spontaneous
  Country: FR (occurrence: FR)
  Receive Date: 20160513
  Receipt Date: 20160513
  Transmission Date: 20160815
  Serious: Yes (Death, Congenital Anomaly)
  Sender: FDA-Public Use
  Company Number: FR-BIOVITRUM-2016FR0329

PATIENT
  Sex: Male

DRUGS (8)
  1. ROACTEMRA [Suspect]
     Active Substance: TOCILIZUMAB
     Route: 064
     Dates: start: 20140822, end: 20140822
  2. DOXYCYCLINE. [Suspect]
     Active Substance: DOXYCYCLINE
     Route: 064
     Dates: start: 20140816, end: 20140826
  3. TOPALGIC [Suspect]
     Active Substance: TRAMADOL
     Route: 064
     Dates: start: 20140906, end: 20140910
  4. EUPANTOL [Suspect]
     Active Substance: PANTOPRAZOLE SODIUM
     Route: 064
     Dates: start: 20140906, end: 20140910
  5. KINERET [Suspect]
     Active Substance: ANAKINRA
     Indication: JUVENILE IDIOPATHIC ARTHRITIS
     Route: 064
     Dates: start: 201312, end: 20140820
  6. ACUPAN [Suspect]
     Active Substance: NEFOPAM HYDROCHLORIDE
     Route: 064
     Dates: start: 20140906, end: 20140910
  7. PARACETAMOL [Suspect]
     Active Substance: ACETAMINOPHEN
     Route: 064
     Dates: start: 20140906, end: 20140910
  8. CORTANCYL [Suspect]
     Active Substance: PREDNISONE
     Route: 064
     Dates: start: 201311

REACTIONS (2)
  - Trisomy 21 [Fatal]
  - Foetal exposure during pregnancy [Fatal]
